FAERS Safety Report 13551731 (Version 2)
Quarter: 2017Q3

REPORT INFORMATION
  Report Type: Report from Study
  Country: US (occurrence: US)
  Receive Date: 20170516
  Receipt Date: 20170705
  Transmission Date: 20171127
  Serious: Yes (Other)
  Sender: FDA-Public Use
  Company Number: US-AMGEN-USASL2017071904

PATIENT
  Age: 66 Year
  Sex: Female

DRUGS (1)
  1. REPATHA [Suspect]
     Active Substance: EVOLOCUMAB
     Indication: HYPERLIPIDAEMIA
     Dosage: 140 MG, Q2WK
     Route: 065

REACTIONS (8)
  - Somnolence [Unknown]
  - Dyspnoea [Recovered/Resolved]
  - Lethargy [Unknown]
  - Influenza like illness [Unknown]
  - Asthenia [Unknown]
  - Diverticulitis [Unknown]
  - Cough [Recovered/Resolved]
  - Malaise [Unknown]
